FAERS Safety Report 7347589-0 (Version None)
Quarter: 2011Q1

REPORT INFORMATION
  Report Type: 
  Country: None (occurrence: None)
  Receive Date: 20110302
  Receipt Date: 20110217
  Transmission Date: 20110831
  Serious: Yes (Hospitalization)
  Sender: FDA-Public Use
  Company Number: 027908

PATIENT

DRUGS (1)
  1. LEVETIRACETAM [Suspect]

REACTIONS (1)
  - PAIN IN EXTREMITY [None]
